FAERS Safety Report 4562976-1 (Version None)
Quarter: 2005Q1

REPORT INFORMATION
  Report Type: 
  Country: None (occurrence: None)
  Receive Date: 20050121
  Receipt Date: 20050117
  Transmission Date: 20050727
  Serious: Yes (Hospitalization)
  Sender: FDA-Public Use
  Company Number: 2004114196

PATIENT
  Age: 59 Year
  Sex: Female

DRUGS (3)
  1. SORTIS (ATORVASTATIN) [Suspect]
     Indication: DYSLIPIDAEMIA
     Dosage: 40 MG (40 MG, 1 IN 1 D), ORAL
     Route: 048
     Dates: start: 20040901, end: 20041208
  2. PERINDOPRIL (PERINDOPRIL) [Concomitant]
  3. CLOPIDOGREL BISULFATE [Concomitant]

REACTIONS (4)
  - CHOLESTASIS [None]
  - HEPATITIS [None]
  - JAUNDICE [None]
  - LIVER DISORDER [None]
